FAERS Safety Report 18946399 (Version 1)
Quarter: 2021Q1

REPORT INFORMATION
  Report Type: Spontaneous
  Country: US (occurrence: US)
  Receive Date: 20210226
  Receipt Date: 20210226
  Transmission Date: 20210420
  Serious: Yes (Other)
  Sender: FDA-Public Use
  Company Number: US-009507513-2102USA008432

PATIENT
  Sex: Female

DRUGS (1)
  1. KEYTRUDA [Suspect]
     Active Substance: PEMBROLIZUMAB
     Indication: LUNG NEOPLASM MALIGNANT
     Dosage: UNK
     Route: 042
     Dates: start: 201908

REACTIONS (4)
  - Pulmonary imaging procedure abnormal [Recovered/Resolved]
  - Tumour inflammation [Recovered/Resolved]
  - Pyrexia [Not Recovered/Not Resolved]
  - Pyrexia [Recovered/Resolved]
